FAERS Safety Report 24465845 (Version 1)
Quarter: 2024Q4

REPORT INFORMATION
  Report Type: Report from Study
  Country: US (occurrence: US)
  Receive Date: 20241018
  Receipt Date: 20241018
  Transmission Date: 20250114
  Serious: No
  Sender: ROCHE
  Company Number: US-ROCHE-3543133

PATIENT
  Age: 52 Year
  Sex: Female
  Weight: 77.6 kg

DRUGS (12)
  1. XOLAIR [Suspect]
     Active Substance: OMALIZUMAB
     Indication: Asthma
     Route: 058
     Dates: start: 20230405, end: 20240402
  2. XOLAIR [Suspect]
     Active Substance: OMALIZUMAB
  3. PROVENTIL [Concomitant]
     Active Substance: ALBUTEROL
     Indication: Wheezing
  4. CETIRIZINE HYDROCHLORIDE [Concomitant]
     Active Substance: CETIRIZINE HYDROCHLORIDE
     Route: 048
  5. DUPIXENT [Concomitant]
     Active Substance: DUPILUMAB
  6. BREO ELLIPTA [Concomitant]
     Active Substance: FLUTICASONE FUROATE\VILANTEROL TRIFENATATE
  7. LEVALBUTEROL [Concomitant]
     Active Substance: LEVALBUTEROL
  8. SINGULAIR [Concomitant]
     Active Substance: MONTELUKAST SODIUM
     Route: 048
  9. NAPROXEN [Concomitant]
     Active Substance: NAPROXEN
     Route: 048
  10. TIOTROPIUM BROMIDE [Concomitant]
     Active Substance: TIOTROPIUM BROMIDE
  11. LEVALBUTEROL [Concomitant]
     Active Substance: LEVALBUTEROL
  12. VENTOLIN [Concomitant]
     Active Substance: ALBUTEROL SULFATE

REACTIONS (4)
  - Hypotension [Recovering/Resolving]
  - Dizziness [Recovered/Resolved]
  - Palpitations [Recovered/Resolved]
  - Balance disorder [Recovered/Resolved]

NARRATIVE: CASE EVENT DATE: 20240402
